FAERS Safety Report 25464142 (Version 1)
Quarter: 2025Q2

REPORT INFORMATION
  Report Type: Spontaneous
  Country: US (occurrence: US)
  Receive Date: 20250621
  Receipt Date: 20250621
  Transmission Date: 20250716
  Serious: No
  Sender: CSL BEHRING
  Company Number: US-BEH-2025209444

PATIENT
  Weight: 106.1 kg

DRUGS (1)
  1. HIZENTRA [Suspect]
     Active Substance: HUMAN IMMUNOGLOBULIN G
     Indication: Selective IgM immunodeficiency
     Dosage: 10 G, QW
     Route: 058
     Dates: start: 20240713

REACTIONS (3)
  - Product dose omission in error [Unknown]
  - Liquid product physical issue [Unknown]
  - Product colour issue [Unknown]
